FAERS Safety Report 8739453 (Version 2)
Quarter: 2012Q4

REPORT INFORMATION
  Report Type: 
  Country: CN (occurrence: CN)
  Receive Date: 20120823
  Receipt Date: 20121017
  Transmission Date: 20130627
  Serious: Yes (Hospitalization)
  Sender: FDA-Public Use
  Company Number: CN-ELI_LILLY_AND_COMPANY-CN201208006383

PATIENT
  Sex: Female
  Weight: 65 kg

DRUGS (2)
  1. FORSTEO [Suspect]
     Indication: OSTEOPOROSIS
     Dosage: 20 ug, qd
     Route: 058
     Dates: start: 20120810, end: 20120813
  2. FORSTEO [Suspect]
     Dosage: 20 ug, qd
     Route: 058
     Dates: start: 20120815

REACTIONS (6)
  - Cardiac disorder [Unknown]
  - Dizziness [Recovered/Resolved]
  - Regurgitation [Recovered/Resolved]
  - Dyspnoea [Recovered/Resolved]
  - Nausea [Recovered/Resolved]
  - Blood uric acid increased [Recovered/Resolved]
